FAERS Safety Report 6414333-0 (Version None)
Quarter: 2009Q4

REPORT INFORMATION
  Report Type: 
  Country: None (occurrence: None)
  Receive Date: 20091026
  Receipt Date: 20091021
  Transmission Date: 20100525
  Serious: No
  Sender: FDA-Public Use
  Company Number: US-ROXANE LABORATORIES, INC.-2009-RO-01085RO

PATIENT
  Sex: Female

DRUGS (2)
  1. BALSALAZIDE [Suspect]
     Indication: COLITIS
     Dosage: 4500 MG
     Route: 048
  2. INTERCORDIN [Concomitant]

REACTIONS (1)
  - ALOPECIA [None]
